FAERS Safety Report 8300160-6 (Version None)
Quarter: 2012Q2

REPORT INFORMATION
  Report Type: 
  Country: None (occurrence: None)
  Receive Date: 20120420
  Receipt Date: 20120411
  Transmission Date: 20120825
  Serious: Yes (Other)
  Sender: FDA-Public Use
  Company Number: US-BAYER-2012-017260

PATIENT
  Sex: Female

DRUGS (2)
  1. MIRENA [Suspect]
     Dosage: 20 MCG/24HR, CONT
     Route: 015
     Dates: end: 20120128
  2. MIRENA [Suspect]
     Dosage: 20 MCG/24HR, CONT
     Route: 015
     Dates: start: 20120128, end: 20120309

REACTIONS (5)
  - DEVICE DISLOCATION [None]
  - SCAR [None]
  - NO ADVERSE EVENT [None]
  - COMPLICATION OF DEVICE REMOVAL [None]
  - ABDOMINAL PAIN [None]
